FAERS Safety Report 6490535-2 (Version None)
Quarter: 2009Q4

REPORT INFORMATION
  Report Type: 
  Country: None (occurrence: None)
  Receive Date: 20091211
  Receipt Date: 20091201
  Transmission Date: 20100525
  Serious: Yes (Other)
  Sender: FDA-Public Use
  Company Number: US-PFIZER INC-2009265517

PATIENT
  Sex: Female
  Weight: 48.9 kg

DRUGS (3)
  1. XALATAN [Suspect]
     Indication: BORDERLINE GLAUCOMA
     Dosage: ONE DROP IN EACH EYE BEFORE BEDTIME
     Route: 047
     Dates: start: 20070101, end: 20091001
  2. TRAVATAN [Suspect]
     Dosage: UNK
     Dates: start: 20091021, end: 20091001
  3. TYLENOL (CAPLET) [Concomitant]
     Indication: ARTHRITIS
     Dosage: UNK

REACTIONS (12)
  - BLEPHARITIS [None]
  - CATARACT [None]
  - DRUG HYPERSENSITIVITY [None]
  - DRY EYE [None]
  - EYE DISCHARGE [None]
  - EYE IRRITATION [None]
  - EYE PAIN [None]
  - EYE PRURITUS [None]
  - EYE SWELLING [None]
  - INTRAOCULAR PRESSURE INCREASED [None]
  - OCULAR HYPERAEMIA [None]
  - VISUAL ACUITY REDUCED [None]
